FAERS Safety Report 17570376 (Version 1)
Quarter: 2020Q1

REPORT INFORMATION
  Report Type: Spontaneous
  Country: US (occurrence: US)
  Receive Date: 20200323
  Receipt Date: 20200323
  Transmission Date: 20200409
  Serious: No
  Sender: FDA-Public Use
  Company Number: US-STRIDES ARCOLAB LIMITED-2020SP000808

PATIENT
  Age: 74 Year
  Sex: Female

DRUGS (1)
  1. ALBENDAZOLE. [Suspect]
     Active Substance: ALBENDAZOLE
     Indication: TOXOCARIASIS
     Dosage: 400 MILLIGRAM, EVERY 12 HRS
     Route: 065

REACTIONS (2)
  - Diffuse alopecia [Unknown]
  - Alopecia [Recovered/Resolved]
